FAERS Safety Report 6088812-2 (Version None)
Quarter: 2009Q1

REPORT INFORMATION
  Report Type: 
  Country: None (occurrence: None)
  Receive Date: 20090224
  Receipt Date: 20090102
  Transmission Date: 20090719
  Serious: Yes (Life-Threatening)
  Sender: FDA-Public Use
  Company Number: GB-ASTRAZENECA-2009GB00312

PATIENT
  Sex: Female

DRUGS (2)
  1. FASLODEX [Suspect]
     Indication: BREAST CANCER
     Route: 030
     Dates: start: 20080808, end: 20080828
  2. ARIMIDEX [Suspect]
     Indication: BREAST CANCER
     Route: 048
     Dates: start: 20080808, end: 20080828

REACTIONS (2)
  - DYSPNOEA [None]
  - PULMONARY EMBOLISM [None]
